FAERS Safety Report 7597216-2 (Version None)
Quarter: 2011Q3

REPORT INFORMATION
  Report Type: 
  Country: None (occurrence: None)
  Receive Date: 20110708
  Receipt Date: 20100929
  Transmission Date: 20111222
  Serious: No
  Sender: FDA-Public Use
  Company Number: US-GLAXOSMITHKLINE-A0884011A

PATIENT
  Age: 9 Year
  Sex: Female

DRUGS (2)
  1. NO CONCURRENT MEDICATION [Concomitant]
  2. FLOVENT [Suspect]
     Indication: THROAT TIGHTNESS
     Dosage: 2PUFF PER DAY
     Route: 055
     Dates: start: 20100928, end: 20100929

REACTIONS (2)
  - EYELID FUNCTION DISORDER [None]
  - FEELING ABNORMAL [None]
